FAERS Safety Report 24402621 (Version 1)
Quarter: 2024Q4

REPORT INFORMATION
  Report Type: Spontaneous
  Country: AT (occurrence: CZ)
  Receive Date: 20241007
  Receipt Date: 20241007
  Transmission Date: 20250114
  Serious: Yes (Other)
  Sender: CELLTRION
  Company Number: AT-CELLTRION INC.-2020AT021790

PATIENT

DRUGS (7)
  1. RITUXIMAB [Suspect]
     Active Substance: RITUXIMAB
     Indication: Brain stem glioma
     Dosage: UNK
     Route: 065
  2. NIMOTUZUMAB [Suspect]
     Active Substance: NIMOTUZUMAB
     Indication: Brain stem glioma
     Dosage: 150 MG/M2
     Route: 065
  3. NIVOLUMAB [Suspect]
     Active Substance: NIVOLUMAB
     Indication: Brain stem glioma
     Dosage: 3 MG/KG
     Route: 065
  4. NIVOLUMAB [Suspect]
     Active Substance: NIVOLUMAB
     Dosage: 1 MG/KG, 7 DAY
     Route: 065
  5. VINORELBINE [Suspect]
     Active Substance: VINORELBINE TARTRATE
     Indication: Brain stem glioma
     Dosage: 25 MG/M2; ADDITIONAL INFORMATION ON DRUG (CODED): OFF LABEL USE
     Route: 065
  6. VINORELBINE [Suspect]
     Active Substance: VINORELBINE TARTRATE
     Dosage: 20 MG/M2
     Route: 065
  7. VALPROATE [Suspect]
     Active Substance: VALPROIC ACID
     Indication: Brain stem glioma
     Dosage: 80-100 UG/ML
     Route: 065

REACTIONS (4)
  - Encephalitis autoimmune [Recovering/Resolving]
  - Off label use [Unknown]
  - Product use in unapproved indication [Unknown]
  - Intentional product use issue [Unknown]
